FAERS Safety Report 13656339 (Version 4)
Quarter: 2017Q3

REPORT INFORMATION
  Report Type: Spontaneous
  Country: PT (occurrence: PT)
  Receive Date: 20170615
  Receipt Date: 20170803
  Transmission Date: 20171127
  Serious: Yes (Hospitalization, Other)
  Sender: FDA-Public Use
  Company Number: PT-PFIZER INC-2017246692

PATIENT
  Age: 85 Year
  Sex: Female

DRUGS (5)
  1. TARGIN [Interacting]
     Active Substance: NALOXONE HYDROCHLORIDE\OXYCODONE HYDROCHLORIDE
     Indication: PAIN
     Dosage: 10 MG, 2X/DAY (2X5 MG/10 MG 2X/DAY, AT BREAKFAST AND AT DINNER)
     Route: 048
  2. ETODOLAC. [Concomitant]
     Active Substance: ETODOLAC
     Dosage: UNK
  3. LYRICA [Suspect]
     Active Substance: PREGABALIN
     Indication: SCIATICA
     Dosage: 75 MG, 1X/DAY (AT NIGHT)
     Route: 048
  4. LYRICA [Interacting]
     Active Substance: PREGABALIN
     Dosage: 75 MG, 2X/DAY
     Route: 048
     Dates: end: 20170619
  5. FLEXIBAN [Concomitant]
     Dosage: UNK

REACTIONS (14)
  - Spinal fracture [Not Recovered/Not Resolved]
  - Drug interaction [Recovering/Resolving]
  - Hallucination [Recovered/Resolved]
  - Diplopia [Recovered/Resolved]
  - Intentional product use issue [Unknown]
  - General physical health deterioration [Unknown]
  - Fall [Recovered/Resolved]
  - Dehydration [Unknown]
  - Condition aggravated [Not Recovered/Not Resolved]
  - Renal function test abnormal [Unknown]
  - Delirium [Recovered/Resolved]
  - Urinary retention [Recovered/Resolved]
  - Agitation [Recovering/Resolving]
  - Somnolence [Recovered/Resolved]
